FAERS Safety Report 5572841-9 (Version None)
Quarter: 2007Q4

REPORT INFORMATION
  Report Type: 
  Country: None (occurrence: None)
  Receive Date: 20071223
  Receipt Date: 20071218
  Transmission Date: 20080405
  Serious: Yes (Other)
  Sender: FDA-Public Use
  Company Number: PHFR2007GB03641

PATIENT
  Age: 29 Year
  Sex: Female
  Weight: 54 kg

DRUGS (2)
  1. TERBINAFINE HCL [Suspect]
     Dosage: 250 MG/DAY
     Route: 048
     Dates: start: 20070901, end: 20071004
  2. DIANETTE [Concomitant]
     Route: 048
     Dates: start: 20070201

REACTIONS (6)
  - ANOREXIA [None]
  - FATIGUE [None]
  - NEUTROPHIL COUNT DECREASED [None]
  - PRURITUS [None]
  - SYNCOPE [None]
  - URTICARIA [None]
